FAERS Safety Report 4698181-8 (Version None)
Quarter: 2005Q2

REPORT INFORMATION
  Report Type: 
  Country: None (occurrence: None)
  Receive Date: 20050623
  Receipt Date: 20050617
  Transmission Date: 20051028
  Serious: Yes (Other)
  Sender: FDA-Public Use
  Company Number: PHBS2005CA08858

PATIENT
  Sex: Female

DRUGS (1)
  1. CLOZARIL [Suspect]
     Dosage: 100-275 MG/D
     Route: 048

REACTIONS (8)
  - CLOSTRIDIAL INFECTION [None]
  - DIARRHOEA [None]
  - DIZZINESS [None]
  - EOSINOPHIL COUNT INCREASED [None]
  - FATIGUE [None]
  - PYREXIA [None]
  - TACHYCARDIA [None]
  - WHITE BLOOD CELL COUNT INCREASED [None]
